FAERS Safety Report 21864917 (Version 1)
Quarter: 2023Q1

REPORT INFORMATION
  Report Type: Spontaneous
  Country: US (occurrence: US)
  Receive Date: 20230116
  Receipt Date: 20230116
  Transmission Date: 20230418
  Serious: Yes (Hospitalization, Other)
  Sender: FDA-Public Use
  Company Number: US-PROCTER+GAMBLE-PH23000145

PATIENT
  Age: 48 Year
  Sex: Female
  Weight: 91 kg

DRUGS (1)
  1. DIPHENHYDRAMINE HYDROCHLORIDE [Suspect]
     Active Substance: DIPHENHYDRAMINE HYDROCHLORIDE
     Dosage: 3.75 GRAM
     Route: 048

REACTIONS (20)
  - Delirium [Recovered/Resolved]
  - Pneumonitis aspiration [Unknown]
  - Mental status changes [Recovered/Resolved]
  - Urinary retention [Unknown]
  - Dry mouth [Unknown]
  - Dysuria [Unknown]
  - Mydriasis [Unknown]
  - Suicide attempt [Unknown]
  - Vomiting [Unknown]
  - Somnolence [Recovered/Resolved]
  - Hypoxia [Unknown]
  - Dysarthria [Recovered/Resolved]
  - Hallucination [Unknown]
  - Pupil fixed [Unknown]
  - Vomiting [Unknown]
  - Gastrointestinal sounds abnormal [Unknown]
  - Disorientation [Recovered/Resolved]
  - Disorientation [Recovered/Resolved]
  - Disorganised speech [Recovered/Resolved]
  - Hallucination, visual [Unknown]
